FAERS Safety Report 8012461-X (Version None)
Quarter: 2011Q4

REPORT INFORMATION
  Report Type: 
  Country: None (occurrence: None)
  Receive Date: 20111228
  Receipt Date: 20111222
  Transmission Date: 20120403
  Serious: Yes (Hospitalization)
  Sender: FDA-Public Use
  Company Number: US-GILEAD-2011-0048524

PATIENT
  Age: 40 Year
  Sex: Male

DRUGS (3)
  1. LEVOFLOXACIN [Concomitant]
     Indication: PRODUCT USED FOR UNKNOWN INDICATION
  2. DOXYCYCLINE [Concomitant]
     Indication: PRODUCT USED FOR UNKNOWN INDICATION
  3. VIREAD [Suspect]
     Indication: HEPATITIS B

REACTIONS (3)
  - HEPATIC ENZYME INCREASED [None]
  - NEUTROPENIA [None]
  - PYREXIA [None]
